FAERS Safety Report 12733301 (Version 2)
Quarter: 2016Q3

REPORT INFORMATION
  Report Type: Report from Study
  Country: US (occurrence: US)
  Receive Date: 20160912
  Receipt Date: 20160930
  Transmission Date: 20161109
  Serious: Yes (Hospitalization, Other)
  Sender: FDA-Public Use
  Company Number: US-EXELIXIS-CABO-16007019

PATIENT
  Age: 69 Year
  Sex: Male

DRUGS (11)
  1. DEXAMETHASONE. [Concomitant]
     Active Substance: DEXAMETHASONE
  2. LOSARTAN. [Concomitant]
     Active Substance: LOSARTAN
  3. MEGESTROL [Concomitant]
     Active Substance: MEGESTROL
  4. METAMUCIL [Concomitant]
     Active Substance: PLANTAGO SEED
  5. METHADONE [Concomitant]
     Active Substance: METHADONE HYDROCHLORIDE
  6. FINASTERIDE. [Concomitant]
     Active Substance: FINASTERIDE
  7. SYNTHROID [Concomitant]
     Active Substance: LEVOTHYROXINE SODIUM
  8. GABAPENTIN. [Concomitant]
     Active Substance: GABAPENTIN
  9. EMLA [Concomitant]
     Active Substance: LIDOCAINE\PRILOCAINE
  10. CABOMETYX [Suspect]
     Active Substance: CABOZANTINIB S-MALATE
     Indication: RENAL CANCER
     Dosage: 40 MG, QD
     Route: 048
     Dates: start: 20160729, end: 20160814
  11. DILAUDID [Concomitant]
     Active Substance: HYDROMORPHONE HYDROCHLORIDE

REACTIONS (3)
  - Thrombosis [Not Recovered/Not Resolved]
  - Oesophagitis [Not Recovered/Not Resolved]
  - Atrial fibrillation [Not Recovered/Not Resolved]

NARRATIVE: CASE EVENT DATE: 20160814
